FAERS Safety Report 4348939-X (Version None)
Quarter: 2004Q2

REPORT INFORMATION
  Report Type: 
  Country: None (occurrence: None)
  Receive Date: 20040423
  Receipt Date: 20040415
  Transmission Date: 20050107
  Serious: Yes (Hospitalization)
  Sender: FDA-Public Use
  Company Number: LTI2004A00060

PATIENT
  Age: 59 Year
  Sex: Female

DRUGS (6)
  1. ACTOS [Suspect]
     Indication: DIABETES MELLITUS NON-INSULIN-DEPENDENT
     Dosage: 30 MG (30 MG, 1 IN 1 D) ORAL
     Route: 048
     Dates: start: 20030519, end: 20040101
  2. RAMIPRIL [Suspect]
     Indication: DIABETIC NEPHROPATHY
     Dosage: 10 MG (5 MG, 2 IN 1 D) ORAL
     Route: 048
     Dates: start: 20010601, end: 20040101
  3. GLUCOPHAGE [Concomitant]
  4. PLAVIX [Concomitant]
  5. LEVOTHYROXINE SODIUM [Concomitant]
  6. URBANYL (CLOBAZAM) [Concomitant]

REACTIONS (6)
  - APLASTIC ANAEMIA [None]
  - HYPERKALAEMIA [None]
  - HYPONATRAEMIA [None]
  - INFLUENZA [None]
  - SYSTEMIC INFLAMMATORY RESPONSE SYNDROME [None]
  - WHITE BLOOD CELL COUNT INCREASED [None]
